FAERS Safety Report 5702441-9 (Version None)
Quarter: 2008Q2

REPORT INFORMATION
  Report Type: 
  Country: None (occurrence: None)
  Receive Date: 20080411
  Receipt Date: 20070426
  Transmission Date: 20081010
  Serious: No
  Sender: FDA-Public Use
  Company Number: US-ASTRAZENECA-2007UW08186

PATIENT
  Age: 30377 Day
  Sex: Female
  Weight: 56.8 kg

DRUGS (1)
  1. ZESTORETIC [Suspect]
     Route: 048
     Dates: start: 20070413

REACTIONS (4)
  - DIZZINESS [None]
  - HEAD INJURY [None]
  - PERIORBITAL HAEMATOMA [None]
  - SYNCOPE [None]
